FAERS Safety Report 10689908 (Version 1)
Quarter: 2015Q1

REPORT INFORMATION
  Report Type: Spontaneous
  Country: CH (occurrence: CH)
  Receive Date: 20150105
  Receipt Date: 20150105
  Transmission Date: 20150720
  Serious: Yes (Hospitalization)
  Sender: FDA-Public Use
  Company Number: PHHY2014CH170254

PATIENT
  Age: 47 Year
  Sex: Male

DRUGS (10)
  1. VENLAFAXINE [Concomitant]
     Active Substance: VENLAFAXINE HYDROCHLORIDE
     Indication: DEPRESSION
     Route: 048
  2. LEPONEX [Suspect]
     Active Substance: CLOZAPINE
     Indication: ALCOHOLISM
  3. LEPONEX [Suspect]
     Active Substance: CLOZAPINE
     Indication: SCHIZOPHRENIA
     Dosage: UNK
     Route: 048
  4. LEPONEX [Suspect]
     Active Substance: CLOZAPINE
     Indication: TOXICITY TO VARIOUS AGENTS
  5. EUTHYROX [Concomitant]
     Active Substance: LEVOTHYROXINE SODIUM
     Dosage: 150 UG, QD
     Route: 048
  6. TEMESTA [Concomitant]
     Active Substance: LORAZEPAM
     Indication: ANXIETY DISORDER
     Route: 048
  7. LEPONEX [Suspect]
     Active Substance: CLOZAPINE
     Indication: SCHIZOPHRENIA, UNDIFFERENTIATED TYPE
     Dosage: 100 MG, QD
     Route: 048
     Dates: start: 20141001, end: 20141030
  8. LEPONEX [Suspect]
     Active Substance: CLOZAPINE
     Indication: PERSONALITY DISORDER
  9. EUTHYROX [Concomitant]
     Active Substance: LEVOTHYROXINE SODIUM
     Indication: HYPOTHYROIDISM
     Dosage: 200 UG, QD
     Route: 048
  10. ANTABUSE [Concomitant]
     Active Substance: DISULFIRAM
     Indication: ALCOHOLISM
     Route: 065

REACTIONS (3)
  - Leukopenia [Recovered/Resolved]
  - Agranulocytosis [Recovered/Resolved]
  - Febrile neutropenia [Recovered/Resolved]

NARRATIVE: CASE EVENT DATE: 20141030
